FAERS Safety Report 8646833 (Version 3)
Quarter: 2013Q2

REPORT INFORMATION
  Report Type: Spontaneous
  Country: US (occurrence: US)
  Receive Date: 20120703
  Receipt Date: 20130404
  Transmission Date: 20140414
  Serious: No
  Sender: FDA-Public Use
  Company Number: US-PFIZER INC-2012154799

PATIENT
  Age: 71 Year
  Sex: Female

DRUGS (1)
  1. XALKORI [Suspect]
     Indication: LUNG NEOPLASM MALIGNANT
     Dosage: 200 MG, 2X/DAY (BID)
     Dates: start: 20111104, end: 20130221

REACTIONS (3)
  - Diarrhoea [Recovered/Resolved]
  - Nausea [Unknown]
  - Vomiting [Unknown]
